FAERS Safety Report 16197591 (Version 8)
Quarter: 2019Q4

REPORT INFORMATION
  Report Type: Spontaneous
  Country: US (occurrence: US)
  Receive Date: 20190415
  Receipt Date: 20191003
  Transmission Date: 20200122
  Serious: Yes (Hospitalization, Disabling)
  Sender: FDA-Public Use
  Company Number: US-PFIZER INC-2019157915

PATIENT
  Age: 68 Year
  Sex: Male
  Weight: 80.27 kg

DRUGS (9)
  1. DILANTIN [Suspect]
     Active Substance: PHENYTOIN
     Indication: SEIZURE
     Dosage: 500 MG DAILY (TWO PILLS TWICE A DAY AND THEN ONE PILL JUST BEFORE BED)
     Route: 048
     Dates: start: 1985, end: 20190313
  2. DILANTIN [Suspect]
     Active Substance: PHENYTOIN
     Indication: EPILEPSY
     Dosage: 500 MG, DAILY (100 MG 5 A DAY)
     Route: 048
     Dates: start: 1985, end: 20190313
  3. VARDENAFIL [Concomitant]
     Active Substance: VARDENAFIL HYDROCHLORIDE
     Dosage: UNK, AS NEEDED
     Dates: start: 2017
  4. MEVACOR [Concomitant]
     Active Substance: LOVASTATIN
     Indication: HYPERLIPIDAEMIA
     Dosage: 20 MG, AT BEDTIME
     Route: 048
  5. LOSARTAN. [Concomitant]
     Active Substance: LOSARTAN
     Indication: HYPERTENSION
     Dosage: UNK
     Dates: start: 20190419
  6. ZESTRIL [Concomitant]
     Active Substance: LISINOPRIL
     Dosage: 20 MG, 1X/DAY
     Route: 048
     Dates: end: 20190419
  7. LOSARTAN. [Concomitant]
     Active Substance: LOSARTAN
     Indication: HYPERLIPIDAEMIA
     Dosage: 50 MG, DAILY
     Route: 048
  8. ATIVAN [Concomitant]
     Active Substance: LORAZEPAM
     Dosage: 1 MG, TWICE DAILY AS NEEDED
     Route: 048
  9. MEVACOR [Concomitant]
     Active Substance: LOVASTATIN
     Indication: HYPERTENSION
     Dosage: UNK

REACTIONS (12)
  - Dysuria [Recovered/Resolved]
  - Hyponatraemia [Recovered/Resolved]
  - Genital swelling [Recovered/Resolved]
  - Stevens-Johnson syndrome [Recovering/Resolving]
  - Generalised oedema [Not Recovered/Not Resolved]
  - Impetigo [Unknown]
  - Weight increased [Recovered/Resolved]
  - Dermatitis [Not Recovered/Not Resolved]
  - Eczema [Not Recovered/Not Resolved]
  - Rash macular [Recovering/Resolving]
  - Pruritus [Not Recovered/Not Resolved]
  - Fatigue [Unknown]

NARRATIVE: CASE EVENT DATE: 2019
